FAERS Safety Report 8998287 (Version 2)
Quarter: 2013Q1

REPORT INFORMATION
  Report Type: Report from Study
  Country: CA (occurrence: CA)
  Receive Date: 20130104
  Receipt Date: 20130204
  Transmission Date: 20140127
  Serious: Yes (Death)
  Sender: FDA-Public Use
  Company Number: PHHY2013CA001103

PATIENT
  Age: 48 Year
  Sex: Male

DRUGS (4)
  1. CLOZARIL [Suspect]
     Indication: SCHIZOAFFECTIVE DISORDER
     Dosage: 650 MG, (300MG MORNING AND 350MG NIGHT)
     Route: 048
     Dates: start: 20111128
  2. LITHIUM [Concomitant]
     Dosage: 900 MG, (300 +600 MG)
  3. PANTOLOC ^BYK GULDEN^ [Concomitant]
     Dosage: 40 MG, BID
     Route: 048
  4. ATROPINE [Concomitant]
     Dosage: 1 %, UNK

REACTIONS (1)
  - Death [Fatal]
